FAERS Safety Report 5577671-X (Version None)
Quarter: 2007Q4

REPORT INFORMATION
  Report Type: 
  Country: None (occurrence: None)
  Receive Date: 20071231
  Receipt Date: 20071227
  Transmission Date: 20080405
  Serious: Yes (Other)
  Sender: FDA-Public Use
  Company Number: US-BRISTOL-MYERS SQUIBB COMPANY-14026017

PATIENT
  Age: 59 Year
  Sex: Female
  Weight: 129 kg

DRUGS (4)
  1. METFORMIN HCL [Suspect]
     Indication: DIABETES MELLITUS
     Route: 048
  2. SYNTHROID [Concomitant]
  3. RELAFEN [Concomitant]
  4. ZOCOR [Concomitant]

REACTIONS (1)
  - IRON DEFICIENCY ANAEMIA [None]
